FAERS Safety Report 5029313-X (Version None)
Quarter: 2006Q2

REPORT INFORMATION
  Report Type: 
  Country: None (occurrence: None)
  Receive Date: 20060616
  Receipt Date: 20060616
  Transmission Date: 20061013
  Serious: Yes (Other)
  Sender: FDA-Public Use
  Company Number: None

PATIENT
  Age: 32 Year
  Sex: Female
  Weight: 54.4316 kg

DRUGS (2)
  1. CLINDAMYCIN HCL [Suspect]
     Indication: DENTAL PULP DISORDER
     Dosage: 30 2X DAY DENTAL
     Route: 004
     Dates: start: 20060605, end: 20060613
  2. CLINDAMYCIN HCL [Suspect]
     Indication: ENDODONTIC PROCEDURE
     Dosage: 30 2X DAY DENTAL
     Route: 004
     Dates: start: 20060605, end: 20060613

REACTIONS (9)
  - ARTHRALGIA [None]
  - BURNING SENSATION [None]
  - DIFFICULTY IN WALKING [None]
  - DYSPHAGIA [None]
  - JOINT SWELLING [None]
  - PHARYNGEAL OEDEMA [None]
  - PHARYNGOLARYNGEAL PAIN [None]
  - RASH GENERALISED [None]
  - THROAT IRRITATION [None]
